FAERS Safety Report 23731142 (Version 2)
Quarter: 2024Q2

REPORT INFORMATION
  Report Type: Spontaneous
  Country: KR (occurrence: KR)
  Receive Date: 20240411
  Receipt Date: 20240422
  Transmission Date: 20240715
  Serious: Yes (Other)
  Sender: FDA-Public Use
  Company Number: KR-ORGANON-O2303KOR002023

PATIENT
  Sex: Female

DRUGS (2)
  1. ETONOGESTREL [Suspect]
     Active Substance: ETONOGESTREL
     Indication: Contraception
     Dosage: 1 IMPLANT
     Route: 059
     Dates: start: 20230211, end: 20230419
  2. ETONOGESTREL [Suspect]
     Active Substance: ETONOGESTREL
     Indication: Menstrual cycle management

REACTIONS (13)
  - Heavy menstrual bleeding [Recovered/Resolved]
  - Vaginal haemorrhage [Recovering/Resolving]
  - Syncope [Recovering/Resolving]
  - Menstrual disorder [Recovering/Resolving]
  - Discomfort [Recovering/Resolving]
  - Pallor [Recovering/Resolving]
  - Asthenia [Recovering/Resolving]
  - Abdominal pain [Recovering/Resolving]
  - Headache [Recovering/Resolving]
  - Dizziness [Recovering/Resolving]
  - Swelling [Recovering/Resolving]
  - Diarrhoea [Recovering/Resolving]
  - Product use issue [Unknown]

NARRATIVE: CASE EVENT DATE: 20230101
